FAERS Safety Report 21351344 (Version 1)
Quarter: 2022Q3

REPORT INFORMATION
  Report Type: Spontaneous
  Country: RU (occurrence: RU)
  Receive Date: 20220919
  Receipt Date: 20220919
  Transmission Date: 20221027
  Serious: Yes (Other)
  Sender: FDA-Public Use
  Company Number: RU-PFIZER INC-PV202200063241

PATIENT
  Age: 57 Year
  Sex: Male

DRUGS (1)
  1. SILDENAFIL CITRATE [Suspect]
     Active Substance: SILDENAFIL CITRATE
     Dosage: UNK

REACTIONS (5)
  - Visual field defect [Unknown]
  - Chloropsia [Unknown]
  - Dyschromatopsia [Unknown]
  - Cyanopsia [Unknown]
  - Therapeutic product effect decreased [Unknown]
